FAERS Safety Report 15724180 (Version 2)
Quarter: 2019Q1

REPORT INFORMATION
  Report Type: Spontaneous
  Country: US (occurrence: US)
  Receive Date: 20181214
  Receipt Date: 20190111
  Transmission Date: 20190417
  Serious: Yes (Other)
  Sender: FDA-Public Use
  Company Number: US-OTSUKA-2018_016501

PATIENT
  Sex: Female

DRUGS (4)
  1. LAMICTAL [Concomitant]
     Active Substance: LAMOTRIGINE
     Indication: PRODUCT USED FOR UNKNOWN INDICATION
     Dosage: 50 MG, QD
     Route: 048
  2. ABILIFY [Suspect]
     Active Substance: ARIPIPRAZOLE
     Indication: MAJOR DEPRESSION
     Dosage: 10 MG, QD
     Route: 065
     Dates: end: 201006
  3. ABILIFY [Suspect]
     Active Substance: ARIPIPRAZOLE
     Indication: BIPOLAR DISORDER
     Dosage: 5 MG, QD
     Route: 065
     Dates: start: 200710
  4. NEURONTIN [Concomitant]
     Active Substance: GABAPENTIN
     Indication: PRODUCT USED FOR UNKNOWN INDICATION
     Dosage: 600 MG, TID
     Route: 048

REACTIONS (16)
  - Compulsive hoarding [Recovered/Resolved]
  - Homeless [Unknown]
  - Eating disorder [Recovered/Resolved]
  - Loss of employment [Unknown]
  - Personal relationship issue [Unknown]
  - Suicide attempt [Recovered/Resolved]
  - Obsessive-compulsive disorder [Recovered/Resolved]
  - Unintended pregnancy [Unknown]
  - Suicidal ideation [Recovered/Resolved]
  - Sexual dysfunction [Recovered/Resolved]
  - Bankruptcy [Unknown]
  - Gastrointestinal surgery [Unknown]
  - Compulsive shopping [Recovered/Resolved]
  - Hypersexuality [Recovered/Resolved]
  - Gambling disorder [Not Recovered/Not Resolved]
  - Economic problem [Unknown]

NARRATIVE: CASE EVENT DATE: 2008
